FAERS Safety Report 7051560-6 (Version None)
Quarter: 2010Q4

REPORT INFORMATION
  Report Type: 
  Country: None (occurrence: None)
  Receive Date: 20101018
  Receipt Date: 20101018
  Transmission Date: 20110411
  Serious: Yes (Life-Threatening, Other)
  Sender: FDA-Public Use
  Company Number: None

PATIENT
  Sex: Male
  Weight: 81.6475 kg

DRUGS (2)
  1. CYCLOBENZAPRINE [Suspect]
     Indication: BACK PAIN
     Dosage: (JAN-FEB)
  2. HYDROCODONE BITARTRATE [Suspect]
     Dosage: 1 3 (JAN-FEB)

REACTIONS (15)
  - AGGRESSION [None]
  - CONVERSION DISORDER [None]
  - DELUSION [None]
  - DEPRESSION [None]
  - HALLUCINATION, AUDITORY [None]
  - HALLUCINATION, VISUAL [None]
  - HOSTILITY [None]
  - HYPOMANIA [None]
  - IMPRISONMENT [None]
  - IRRITABILITY [None]
  - LOSS OF EMPLOYMENT [None]
  - PARANOIA [None]
  - PHYSICAL ASSAULT [None]
  - STRESS [None]
  - SUICIDAL BEHAVIOUR [None]
